FAERS Safety Report 24285673 (Version 3)
Quarter: 2024Q4

REPORT INFORMATION
  Report Type: Spontaneous
  Country: CO (occurrence: CO)
  Receive Date: 20240905
  Receipt Date: 20241015
  Transmission Date: 20250115
  Serious: No
  Sender: PFIZER
  Company Number: CO-PFIZER INC-202400247616

PATIENT

DRUGS (1)
  1. GENOTROPIN [Suspect]
     Active Substance: SOMATROPIN

REACTIONS (1)
  - Device difficult to use [Unknown]
